FAERS Safety Report 9904497 (Version 1)
Quarter: 2014Q1

REPORT INFORMATION
  Report Type: Spontaneous
  Country: US (occurrence: US)
  Receive Date: 20140218
  Receipt Date: 20140218
  Transmission Date: 20141002
  Serious: Yes (Other)
  Sender: FDA-Public Use
  Company Number: US-JNJFOC-20140206301

PATIENT
  Age: 52 Year
  Sex: Female

DRUGS (5)
  1. ULTRACET [Suspect]
     Indication: FIBROMYALGIA
     Route: 048
  2. BENTYL [Suspect]
     Indication: FIBROMYALGIA
     Route: 065
  3. CYMBALTA [Suspect]
     Indication: FIBROMYALGIA
     Route: 065
  4. WELLBUTRIN [Suspect]
     Indication: FIBROMYALGIA
     Route: 065
  5. KLONOPIN [Suspect]
     Indication: FIBROMYALGIA
     Route: 065

REACTIONS (1)
  - Cystitis interstitial [Unknown]
